FAERS Safety Report 14884298 (Version 1)
Quarter: 2018Q2

REPORT INFORMATION
  Report Type: Spontaneous
  Country: US (occurrence: US)
  Receive Date: 20180511
  Receipt Date: 20180511
  Transmission Date: 20180711
  Serious: Yes (Hospitalization, Other)
  Sender: FDA-Public Use
  Company Number: US-PRINSTON PHARMACEUTICAL INC.-2018PRN00236

PATIENT
  Age: 18 Year
  Sex: Female

DRUGS (1)
  1. BUPROPION HYDROCHLORIDE. [Suspect]
     Active Substance: BUPROPION HYDROCHLORIDE
     Dosage: 27 G, ONCE
     Route: 048

REACTIONS (5)
  - Overdose [Recovered/Resolved]
  - Coma [Recovered/Resolved]
  - Status epilepticus [Recovered/Resolved]
  - Cardiotoxicity [Recovered/Resolved]
  - Electrocardiogram QT prolonged [Recovered/Resolved]
